FAERS Safety Report 15831929 (Version 1)
Quarter: 2019Q1

REPORT INFORMATION
  Report Type: Spontaneous
  Country: ES (occurrence: ES)
  Receive Date: 20190116
  Receipt Date: 20190116
  Transmission Date: 20190417
  Serious: Yes (Hospitalization)
  Sender: FDA-Public Use
  Company Number: ES-SUN PHARMACEUTICAL INDUSTRIES LTD-2019RR-196144

PATIENT
  Age: 82 Year
  Sex: Male

DRUGS (1)
  1. MEMANTINA [Suspect]
     Active Substance: MEMANTINE HYDROCHLORIDE
     Indication: DEMENTIA
     Dosage: ()
     Route: 065
     Dates: start: 20170509, end: 20170526

REACTIONS (4)
  - Asthenia [Recovered/Resolved]
  - Petit mal epilepsy [Recovered/Resolved]
  - Hypoglycaemia [Recovered/Resolved]
  - Decreased appetite [Recovered/Resolved]

NARRATIVE: CASE EVENT DATE: 201705
